FAERS Safety Report 15792911 (Version 1)
Quarter: 2019Q1

REPORT INFORMATION
  Report Type: Spontaneous
  Country: SE (occurrence: SE)
  Receive Date: 20190107
  Receipt Date: 20190107
  Transmission Date: 20190417
  Serious: Yes (Death)
  Sender: FDA-Public Use
  Company Number: SE-TEVA-2019-SE-995658

PATIENT
  Age: 80 Year
  Sex: Male

DRUGS (12)
  1. AMILORIDE [Concomitant]
     Active Substance: AMILORIDE
  2. ENALAPRIL [Concomitant]
     Active Substance: ENALAPRIL
  3. SYMBICORT [Concomitant]
     Active Substance: BUDESONIDE\FORMOTEROL FUMARATE DIHYDRATE
  4. MIRTAZAPINE. [Concomitant]
     Active Substance: MIRTAZAPINE
  5. BEHEPAN [Concomitant]
     Active Substance: HYDROXOCOBALAMIN
  6. ALLOPURINOL. [Concomitant]
     Active Substance: ALLOPURINOL
  7. LOGIMAX [Concomitant]
     Active Substance: FELODIPINE\METOPROLOL SUCCINATE
  8. SIMVASTATIN. [Concomitant]
     Active Substance: SIMVASTATIN
  9. MADOPARK [Concomitant]
     Active Substance: BENSERAZIDE HYDROCHLORIDE\LEVODOPA
  10. VALACICLOVIR [Suspect]
     Active Substance: VALACYCLOVIR HYDROCHLORIDE
     Indication: HERPES ZOSTER
     Dosage: 3000 MILLIGRAM DAILY; 500 MG 2X3
     Route: 048
     Dates: start: 2018, end: 2018
  11. BICALUTAMIDE. [Concomitant]
     Active Substance: BICALUTAMIDE
  12. METFORMIN [Concomitant]
     Active Substance: METFORMIN HYDROCHLORIDE

REACTIONS (4)
  - Myoclonus [Fatal]
  - Renal failure [Fatal]
  - Coma [Fatal]
  - Encephalopathy [Fatal]

NARRATIVE: CASE EVENT DATE: 2018
